FAERS Safety Report 10533687 (Version 1)
Quarter: 2014Q4

REPORT INFORMATION
  Report Type: Spontaneous
  Country: FR (occurrence: None)
  Receive Date: 20141020
  Receipt Date: 20141020
  Transmission Date: 20150529
  Serious: Yes (Hospitalization)
  Sender: FDA-Public Use
  Company Number: 2014278077

PATIENT
  Age: 68 Year
  Sex: Male

DRUGS (14)
  1. PERIKABIVEN [Suspect]
     Active Substance: ALANINE\ARGININE\ASPARTIC ACID\CALCIUM CHLORIDE\DEXTROSE MONOHYDRATE\GLUTAMIC ACID\GLYCINE\HISTIDINE\ISOLEUCINE\LEUCINE\LYSINE HYDROCHLORIDE\MAGNESIUM SULFATE HEPTAHYDRATE\METHIONINE\PHENYLALANINE\POTASSIUM CHLORIDE\PROLINE\SERINE\SODIUM ACETATE\SODIUM GLYCEROPHOSPHATE ANHYDROUS\SOYBEAN OIL\THREONIN
     Route: 042
     Dates: start: 20140807
  2. CRESTOR [Concomitant]
     Active Substance: ROSUVASTATIN CALCIUM
  3. SEROPLEX (ESCITALOPRAM OXALATE) [Concomitant]
     Active Substance: ESCITALOPRAM OXALATE
  4. VANCOMYCIN (VANCOMYCIN) [Suspect]
     Active Substance: VANCOMYCIN
     Dosage: UNK, OPHTHALMIC
     Route: 047
     Dates: start: 20140901, end: 20140914
  5. ZOLPIDEM (ZOLPIDEM) [Concomitant]
     Active Substance: ZOLPIDEM TARTRATE
  6. FRAGMINE (DALTEPARIN SODIUM) SOLUTION FOR INJECTION [Suspect]
     Active Substance: DALTEPARIN SODIUM
     Route: 058
     Dates: start: 20140906
  7. VANCOMYCIN HCL [Suspect]
     Active Substance: VANCOMYCIN HYDROCHLORIDE
     Route: 042
     Dates: start: 20140910, end: 20140915
  8. KARDEGIC [Concomitant]
     Active Substance: ASPIRIN LYSINE
  9. FORLAX (MACROGOL) [Concomitant]
  10. TICARCILLIN [Suspect]
     Active Substance: TICARCILLIN
     Route: 047
     Dates: start: 20140901, end: 20140914
  11. REYATAZ [Concomitant]
     Active Substance: ATAZANAVIR SULFATE
  12. ZIAGEN (ABACAVIR SULFATE) [Concomitant]
  13. EMTRIVA (EMTRICITABINE) [Concomitant]
  14. EUPANTOL (PANTOPRAZOLE) [Concomitant]

REACTIONS (2)
  - Stevens-Johnson syndrome [None]
  - Staphylococcus test positive [None]

NARRATIVE: CASE EVENT DATE: 20140912
